FAERS Safety Report 8221191-0 (Version None)
Quarter: 2012Q1

REPORT INFORMATION
  Report Type: 
  Country: None (occurrence: None)
  Receive Date: 20120320
  Receipt Date: 20120312
  Transmission Date: 20120608
  Serious: Yes (Other)
  Sender: FDA-Public Use
  Company Number: PHHY2010CA49349

PATIENT
  Sex: Male

DRUGS (4)
  1. SANDOSTATIN LAR [Suspect]
     Dosage: 20 MG, EVERY 4 WEEK
     Route: 030
  2. SANDOSTATIN LAR [Suspect]
     Dosage: 30 MG, QMO
     Route: 030
     Dates: start: 20110401
  3. SANDOSTATIN LAR [Suspect]
     Indication: ACROMEGALY
     Dosage: 30 MG, EVERY MONTH
     Route: 030
     Dates: start: 20100521
  4. CABERGOLINE [Concomitant]
     Dosage: 6 MG, UNK

REACTIONS (10)
  - DIZZINESS [None]
  - BALANCE DISORDER [None]
  - CENTRAL NERVOUS SYSTEM LESION [None]
  - VESTIBULAR DISORDER [None]
  - DIARRHOEA [None]
  - INJECTION SITE PAIN [None]
  - ASTHENIA [None]
  - SKIN INFECTION [None]
  - INNER EAR DISORDER [None]
  - NAUSEA [None]
